FAERS Safety Report 10924194 (Version 1)
Quarter: 2015Q1

REPORT INFORMATION
  Report Type: Spontaneous
  Country: US (occurrence: None)
  Receive Date: 20150316
  Receipt Date: 20150316
  Transmission Date: 20150721
  Serious: Yes (Other)
  Sender: FDA-Public Use
  Company Number: None

PATIENT
  Age: 35 Year
  Sex: Female
  Weight: 72.58 kg

DRUGS (4)
  1. THYTROID MEDS. [Concomitant]
  2. VITAMIN C [Concomitant]
     Active Substance: ASCORBIC ACID
  3. VITAMIN D [Concomitant]
     Active Substance: CHOLECALCIFEROL
  4. NEURONTIN [Suspect]
     Active Substance: GABAPENTIN
     Indication: NEURALGIA
     Dosage: TAKEN BY MOUTH
     Dates: start: 20150227, end: 20150314

REACTIONS (3)
  - Hypoaesthesia oral [None]
  - Glossitis [None]
  - Oral candidiasis [None]

NARRATIVE: CASE EVENT DATE: 20150312
